FAERS Safety Report 14805178 (Version 4)
Quarter: 2018Q2

REPORT INFORMATION
  Report Type: Spontaneous
  Country: JP (occurrence: JP)
  Receive Date: 20180425
  Receipt Date: 20180522
  Transmission Date: 20180711
  Serious: Yes (Other)
  Sender: FDA-Public Use
  Company Number: JP-PFIZER INC-2018158558

PATIENT
  Age: 61 Year
  Sex: Female
  Weight: 47.2 kg

DRUGS (14)
  1. PREDNISOLONE. [Suspect]
     Active Substance: PREDNISOLONE
     Indication: BURKITT^S LYMPHOMA STAGE IV
     Dosage: 1 MG/KG, CYCLIC
  2. DOXORUBICIN HCL [Suspect]
     Active Substance: DOXORUBICIN HYDROCHLORIDE
     Indication: BURKITT^S LYMPHOMA STAGE IV
     Dosage: 50 MG/M2, CYCLIC
  3. CYCLOPHOSPHAMIDE. [Suspect]
     Active Substance: CYCLOPHOSPHAMIDE
     Dosage: 750 MG/M2, CYCLIC
  4. VINCRISTINE [Suspect]
     Active Substance: VINCRISTINE
     Indication: BURKITT^S LYMPHOMA STAGE IV
     Dosage: 1 MG/M2, CYCLIC
  5. PREDNISOLONE. [Suspect]
     Active Substance: PREDNISOLONE
     Dosage: 2 MG/M2, CYCLIC
  6. RITUXIMAB. [Suspect]
     Active Substance: RITUXIMAB
     Indication: BURKITT^S LYMPHOMA STAGE IV
     Dosage: 375 MG/M2, CYCLIC
  7. PREDNISOLONE. [Suspect]
     Active Substance: PREDNISOLONE
     Dosage: 1 MG/KG, CYCLIC
  8. RITUXIMAB. [Suspect]
     Active Substance: RITUXIMAB
     Dosage: 375 MG/M2, CYCLIC
  9. VINCRISTINE [Suspect]
     Active Substance: VINCRISTINE
     Dosage: 1.4 MG/M2, CYCLIC
  10. CYCLOPHOSPHAMIDE. [Suspect]
     Active Substance: CYCLOPHOSPHAMIDE
     Dosage: 540 MG/M2, CYCLIC
  11. VINCRISTINE [Suspect]
     Active Substance: VINCRISTINE
     Dosage: 1 MG/M2, CYCLIC
  12. CYCLOPHOSPHAMIDE. [Suspect]
     Active Substance: CYCLOPHOSPHAMIDE
     Indication: BURKITT^S LYMPHOMA STAGE IV
     Dosage: 540 MG/M2, CYCLIC
  13. PIRARUBICIN [Suspect]
     Active Substance: PIRARUBICIN
     Indication: BURKITT^S LYMPHOMA STAGE IV
     Dosage: 36 MG/M2, CYCLIC
  14. PIRARUBICIN [Suspect]
     Active Substance: PIRARUBICIN
     Dosage: 36 MG/M2, CYCLIC

REACTIONS (4)
  - Subarachnoid haemorrhage [Unknown]
  - Pulmonary infarction [Unknown]
  - Neutropenia [Unknown]
  - Deep vein thrombosis [Unknown]
